FAERS Safety Report 8464851-9 (Version None)
Quarter: 2012Q2

REPORT INFORMATION
  Report Type: 
  Country: None (occurrence: None)
  Receive Date: 20120626
  Receipt Date: 20120614
  Transmission Date: 20120825
  Serious: Yes (Other)
  Sender: FDA-Public Use
  Company Number: US-SANOFI-AVENTIS-2012SA042984

PATIENT
  Sex: Female
  Weight: 53 kg

DRUGS (2)
  1. HUMALOG [Suspect]
     Route: 065
     Dates: start: 19990101
  2. LANTUS [Suspect]
     Dosage: DOSE:34 UNIT(S)
     Route: 058
     Dates: start: 19990101

REACTIONS (5)
  - FEMUR FRACTURE [None]
  - DIZZINESS [None]
  - FALL [None]
  - HIP FRACTURE [None]
  - VOMITING [None]
